FAERS Safety Report 18159003 (Version 3)
Quarter: 2020Q3

REPORT INFORMATION
  Report Type: Spontaneous
  Country: US (occurrence: US)
  Receive Date: 20200817
  Receipt Date: 20200910
  Transmission Date: 20201103
  Serious: No
  Sender: FDA-Public Use
  Company Number: US-ALKERMES INC.-ALK-2020-003361

PATIENT
  Sex: Male
  Weight: 70.3 kg

DRUGS (5)
  1. VIVITROL [Suspect]
     Active Substance: NALTREXONE
     Indication: ALCOHOLISM
     Dosage: 380 MILLIGRAM, QMO
     Route: 030
     Dates: start: 201908
  2. VITAMIN D [Concomitant]
     Active Substance: VITAMIN D NOS
     Indication: PRODUCT USED FOR UNKNOWN INDICATION
     Dosage: UNK
  3. VITAMIN B12 [Concomitant]
     Active Substance: CYANOCOBALAMIN
     Indication: PRODUCT USED FOR UNKNOWN INDICATION
     Dosage: UNK
  4. VIVITROL [Suspect]
     Active Substance: NALTREXONE
     Dosage: 380 MILLIGRAM, QMO
     Route: 030
     Dates: start: 2016, end: 2016
  5. VITAMIN K [Concomitant]
     Active Substance: PHYTONADIONE
     Indication: PRODUCT USED FOR UNKNOWN INDICATION
     Dosage: UNK

REACTIONS (10)
  - Product dose omission issue [Recovered/Resolved]
  - Feeding disorder [Recovered/Resolved]
  - Abdominal discomfort [Recovered/Resolved]
  - Weight decreased [Recovered/Resolved]
  - Injection site reaction [Unknown]
  - Nausea [Recovered/Resolved]
  - Road traffic accident [Recovered/Resolved]
  - Injection site pain [Unknown]
  - Alcohol use [Recovered/Resolved]
  - Skin abrasion [Recovered/Resolved]

NARRATIVE: CASE EVENT DATE: 2016
